FAERS Safety Report 4802111-5 (Version None)
Quarter: 2005Q4

REPORT INFORMATION
  Report Type: 
  Country: None (occurrence: None)
  Receive Date: 20051012
  Receipt Date: 20050930
  Transmission Date: 20060501
  Serious: Yes (Other)
  Sender: FDA-Public Use
  Company Number: 2005136409

PATIENT
  Sex: Female

DRUGS (2)
  1. LYRICA [Suspect]
     Indication: BACK PAIN
     Dosage: (75 MG)
     Dates: start: 20050929
  2. NEURONTIN [Suspect]
     Indication: ILL-DEFINED DISORDER

REACTIONS (6)
  - BACK DISORDER [None]
  - BACK PAIN [None]
  - DISTURBANCE IN ATTENTION [None]
  - DIZZINESS [None]
  - SPINAL FUSION SURGERY [None]
  - VISION BLURRED [None]
